FAERS Safety Report 15677482 (Version 1)
Quarter: 2018Q4

REPORT INFORMATION
  Report Type: Spontaneous
  Country: TR (occurrence: TR)
  Receive Date: 20181130
  Receipt Date: 20181130
  Transmission Date: 20190205
  Serious: Yes (Other)
  Sender: FDA-Public Use
  Company Number: PHHY2018TR162316

PATIENT
  Age: 28 Year
  Sex: Male

DRUGS (2)
  1. PROPARACAINE HCL [Suspect]
     Active Substance: PROPARACAINE HYDROCHLORIDE
     Indication: PAIN
     Route: 061
  2. PROPARACAINE HCL [Suspect]
     Active Substance: PROPARACAINE HYDROCHLORIDE
     Indication: DISCOMFORT

REACTIONS (3)
  - Corneal lesion [Unknown]
  - Drug abuse [Unknown]
  - Keratitis [Unknown]
